FAERS Safety Report 17447216 (Version 1)
Quarter: 2020Q1

REPORT INFORMATION
  Report Type: Spontaneous
  Country: US (occurrence: US)
  Receive Date: 20200221
  Receipt Date: 20200221
  Transmission Date: 20200409
  Serious: No
  Sender: FDA-Public Use
  Company Number: US-BAYER-2020-017725

PATIENT
  Sex: Female

DRUGS (4)
  1. ESTRADIOL HEMIHYDRATE [Suspect]
     Active Substance: ESTRADIOL HEMIHYDRATE
     Route: 062
  2. PROGESTIN [Concomitant]
     Active Substance: PROGESTERONE
  3. VITAMINS NOS [Concomitant]
     Active Substance: VITAMINS
  4. TESTOSTERONE. [Concomitant]
     Active Substance: TESTOSTERONE

REACTIONS (2)
  - Product adhesion issue [None]
  - Pain [None]
